FAERS Safety Report 17438642 (Version 10)
Quarter: 2022Q2

REPORT INFORMATION
  Report Type: Report from Study
  Country: DE (occurrence: None)
  Receive Date: 20200220
  Receipt Date: 20220421
  Transmission Date: 20220721
  Serious: Yes (Hospitalization)
  Sender: FDA-Public Use
  Company Number: DE-ROCHE-2501844

PATIENT
  Age: 69 Year
  Sex: Female
  Weight: 75 kg

DRUGS (34)
  1. ATEZOLIZUMAB [Suspect]
     Active Substance: ATEZOLIZUMAB
     Indication: Malignant neoplasm of unknown primary site
     Dosage: DATE OF LAST DOSE OF ATEZOLIZUMAB PRIOR TO EVENT:09/DEC/2019
     Route: 041
     Dates: start: 20191209
  2. CARBOPLATIN [Suspect]
     Active Substance: CARBOPLATIN
     Indication: Malignant neoplasm of unknown primary site
     Dosage: INDUCTION PHASE?DATE OF LAST DOSE OF (550 MG) OF CARBOPLATIN PRIOR TO SAE/AESI ONSET 09/MAY/2019 AT
     Route: 042
     Dates: start: 20190509
  3. PACLITAXEL [Suspect]
     Active Substance: PACLITAXEL
     Indication: Malignant neoplasm of unknown primary site
     Dosage: INDUCTION PHASE
     Route: 042
     Dates: start: 20190509
  4. CARBOPLATIN [Suspect]
     Active Substance: CARBOPLATIN
     Indication: Malignant neoplasm of unknown primary site
     Dosage: TREATMENT PHASE?DATE OF LAST TREATMENT STUDY DRUG CARBOPLATIN ADMINISTERED PRIOR TO SAE/AESI ONSET:
     Route: 042
     Dates: start: 20190805
  5. PACLITAXEL [Suspect]
     Active Substance: PACLITAXEL
     Indication: Malignant neoplasm of unknown primary site
     Dosage: TREATMENT PHASE?DATE OF LAST DOSE OF TREATMENT STUDY DRUG PACLITAXEL PRIOR TO SAE/AESI ONSET: 05/AUG
     Route: 042
     Dates: start: 20190805
  6. NOVALGIN (METAMIZOLE SODIUM) [Concomitant]
     Active Substance: METAMIZOLE SODIUM
  7. NOVALGIN (METAMIZOLE SODIUM) [Concomitant]
     Active Substance: METAMIZOLE SODIUM
     Route: 048
     Dates: start: 20190715
  8. PANTOPRAZOLE SODIUM [Concomitant]
     Active Substance: PANTOPRAZOLE SODIUM
     Indication: Prophylaxis
  9. PANTOPRAZOLE SODIUM [Concomitant]
     Active Substance: PANTOPRAZOLE SODIUM
     Route: 042
     Dates: start: 20190912, end: 20190912
  10. METHIMAZOLE [Concomitant]
     Active Substance: METHIMAZOLE
     Route: 048
  11. BUDESONIDE [Concomitant]
     Active Substance: BUDESONIDE
     Dosage: INHALATION
  12. CYMBALTA [Concomitant]
     Active Substance: DULOXETINE HYDROCHLORIDE
     Route: 048
  13. TRIMIPRAMINE [Concomitant]
     Active Substance: TRIMIPRAMINE
     Indication: Prophylaxis
     Route: 048
     Dates: start: 20190401
  14. METOCLOPRAMIDE [Concomitant]
     Active Substance: METOCLOPRAMIDE
     Indication: Vomiting
     Dosage: 1 AMPULE
     Route: 042
     Dates: start: 20190912, end: 20190912
  15. METOCLOPRAMIDE [Concomitant]
     Active Substance: METOCLOPRAMIDE
     Indication: Prophylaxis
     Dosage: DOSE: 30
     Route: 048
     Dates: start: 20190913
  16. METOCLOPRAMIDE [Concomitant]
     Active Substance: METOCLOPRAMIDE
     Dosage: DOSE: 1 AMPULE
     Route: 042
     Dates: start: 20190916, end: 20190916
  17. ONDANSETRON [Concomitant]
     Active Substance: ONDANSETRON
     Indication: Vomiting
     Route: 048
     Dates: start: 20190913
  18. CEFTAZIDIME [Concomitant]
     Active Substance: CEFTAZIDIME
     Indication: Leukocyturia
     Route: 042
     Dates: start: 20190926
  19. CEFTAZIDIME [Concomitant]
     Active Substance: CEFTAZIDIME
     Route: 042
     Dates: start: 20190928, end: 20190929
  20. ENOXAPARIN [Concomitant]
     Active Substance: ENOXAPARIN
     Indication: Prophylaxis
     Route: 058
     Dates: start: 20190927, end: 20190929
  21. ENOXAPARIN [Concomitant]
     Active Substance: ENOXAPARIN
     Route: 058
     Dates: start: 20191212
  22. DULOXETINE [Concomitant]
     Active Substance: DULOXETINE
     Indication: Prophylaxis
     Route: 048
     Dates: start: 20190927
  23. POLYETHYLENE GLYCOLS [Concomitant]
     Active Substance: POLYETHYLENE GLYCOLS
     Indication: Prophylaxis
     Dosage: DOSE: 2 (OTHER)
     Route: 048
     Dates: start: 20190928, end: 20190930
  24. LAXANS [Concomitant]
     Indication: Constipation
     Route: 048
     Dates: start: 20190620
  25. HYDROMORPHONE [Concomitant]
     Active Substance: HYDROMORPHONE
     Indication: Abdominal pain lower
     Route: 048
     Dates: start: 20191007, end: 20191118
  26. HYDROMORPHONE [Concomitant]
     Active Substance: HYDROMORPHONE
     Route: 048
     Dates: start: 20191119
  27. FENTANYL [Concomitant]
     Active Substance: FENTANYL
     Indication: Abdominal pain lower
     Route: 062
     Dates: start: 20191117
  28. PIRITRAMID [Concomitant]
     Indication: Abdominal pain lower
     Route: 058
     Dates: start: 20191219, end: 20191219
  29. PIRITRAMID [Concomitant]
     Route: 058
     Dates: start: 20191222, end: 20191222
  30. BISOPROLOL [Concomitant]
     Active Substance: BISOPROLOL
     Indication: Tachycardia
     Route: 048
     Dates: start: 20191215
  31. BISOPROLOL [Concomitant]
     Active Substance: BISOPROLOL
     Route: 048
  32. BISOPROLOL [Concomitant]
     Active Substance: BISOPROLOL
     Route: 048
     Dates: start: 20191214, end: 20191214
  33. TORSEMIDE [Concomitant]
     Active Substance: TORSEMIDE
     Indication: Oedema peripheral
     Route: 065
     Dates: start: 20191225, end: 20191225
  34. LASIX [Concomitant]
     Active Substance: FUROSEMIDE
     Indication: Oedema peripheral
     Route: 042
     Dates: start: 20191226

REACTIONS (1)
  - Vomiting [Not Recovered/Not Resolved]

NARRATIVE: CASE EVENT DATE: 20191212
